FAERS Safety Report 4905306-5 (Version None)
Quarter: 2006Q1

REPORT INFORMATION
  Report Type: 
  Country: None (occurrence: None)
  Receive Date: 20060208
  Receipt Date: 20060127
  Transmission Date: 20060701
  Serious: Yes (Hospitalization)
  Sender: FDA-Public Use
  Company Number: PHHO2006IL01805

PATIENT
  Age: 65 Year
  Sex: Female

DRUGS (9)
  1. NEORAL [Suspect]
     Indication: RENAL TRANSPLANT
     Dosage: UNK, UNK
     Route: 048
     Dates: start: 20040830
  2. PREDNISONE [Suspect]
     Indication: RENAL TRANSPLANT
     Route: 048
     Dates: start: 20040906
  3. NORMITEN [Concomitant]
     Route: 048
     Dates: start: 20040902
  4. DACLIZUMAB [Suspect]
     Indication: RENAL TRANSPLANT
     Dosage: 75 MG PER 2 WEEK
     Route: 042
     Dates: start: 20040830
  5. MYCOPHENOLATE MOFETIL [Suspect]
     Indication: RENAL TRANSPLANT
     Dosage: 500 MG, BID
     Route: 048
     Dates: start: 20050301
  6. MYCOPHENOLATE MOFETIL [Suspect]
     Dosage: UNK, UNK
     Route: 048
     Dates: start: 20040830, end: 20041001
  7. GANCICLOVIR [Concomitant]
     Dates: start: 20040902
  8. SIMVASTATIN [Concomitant]
  9. VALGANCICLOVIR [Concomitant]
     Dates: start: 20041010

REACTIONS (15)
  - ATONIC URINARY BLADDER [None]
  - BLADDER CATHETERISATION [None]
  - BLOOD CREATININE INCREASED [None]
  - CIRCUMCISION [None]
  - ENTEROCOCCAL INFECTION [None]
  - EPIDIDYMITIS [None]
  - HYPERGLYCAEMIA [None]
  - KLEBSIELLA INFECTION [None]
  - ORCHIDECTOMY [None]
  - ORCHITIS [None]
  - PHIMOSIS [None]
  - PNEUMONIA KLEBSIELLA [None]
  - URINARY RETENTION [None]
  - URINARY TRACT INFECTION [None]
  - UROSEPSIS [None]
